FAERS Safety Report 6958028 (Version 3)
Quarter: 2014Q3

REPORT INFORMATION
  Report Type: Spontaneous
  Country: KR (occurrence: KR)
  Receive Date: 20090401
  Receipt Date: 20140814
  Transmission Date: 20150326
  Serious: Yes (Other)
  Sender: FDA-Public Use
  Company Number: KR-ELI_LILLY_AND_COMPANY-KR200903007298

PATIENT
  Age: 59 Year
  Sex: Male

DRUGS (11)
  1. ZYPREXA [Suspect]
     Active Substance: OLANZAPINE
     Dosage: 20 MG, DAILY (1/D)
     Route: 048
  2. BENZTROPINE [Concomitant]
     Active Substance: BENZTROPINE
     Dosage: 2 MG
     Route: 065
  3. ZYPREXA [Suspect]
     Active Substance: OLANZAPINE
     Dosage: 10 MG, ONCE
  4. ZYPREXA [Suspect]
     Active Substance: OLANZAPINE
     Dosage: 10 MG, ONCE
  5. VALPROATE SODIUM. [Concomitant]
     Active Substance: VALPROATE SODIUM
     Dosage: 1000 MG, DAILY (1/D)
     Route: 065
  6. LORAZEPAM. [Concomitant]
     Active Substance: LORAZEPAM
     Indication: INSOMNIA
     Dosage: 2 MG, DAILY (1/D)
     Route: 065
  7. ZYPREXA [Suspect]
     Active Substance: OLANZAPINE
     Dosage: UNK, UNKNOWN
     Route: 048
  8. HALOPERIDOL. [Concomitant]
     Active Substance: HALOPERIDOL
     Indication: AGGRESSION
     Dosage: 5 MG, EACH EVENING
     Route: 030
  9. ZYPREXA [Suspect]
     Active Substance: OLANZAPINE
     Indication: AGGRESSION
     Dosage: UNK. UNK
     Route: 048
  10. AMISULPRIDE [Concomitant]
     Active Substance: AMISULPRIDE
     Dosage: 80 MG, DAILY (1/D)
     Route: 065
  11. CLONAZEPAM. [Concomitant]
     Active Substance: CLONAZEPAM
     Dosage: 1 MG, DAILY (1/D)
     Route: 065

REACTIONS (3)
  - Restless legs syndrome [Recovered/Resolved]
  - Agitation [Unknown]
  - Off label use [Unknown]
